FAERS Safety Report 4421313-3 (Version None)
Quarter: 2004Q3

REPORT INFORMATION
  Report Type: 
  Country: None (occurrence: None)
  Receive Date: 20040707
  Receipt Date: 20040314
  Transmission Date: 20050211
  Serious: Yes (Other)
  Sender: FDA-Public Use
  Company Number: A03200400780

PATIENT

DRUGS (2)
  1. ARIXTRA [Suspect]
     Indication: DEEP VEIN THROMBOSIS
     Dosage: SUBCUTANEOUS
     Route: 058
     Dates: start: 20040301
  2. ARIXTRA [Suspect]
     Indication: HIP ARTHROPLASTY
     Dosage: SUBCUTANEOUS
     Route: 058
     Dates: start: 20040301

REACTIONS (1)
  - DEEP VEIN THROMBOSIS [None]
